FAERS Safety Report 24409887 (Version 2)
Quarter: 2024Q4

REPORT INFORMATION
  Report Type: Report from Study
  Country: US (occurrence: US)
  Receive Date: 20241008
  Receipt Date: 20241118
  Transmission Date: 20250115
  Serious: No
  Sender: AMGEN
  Company Number: US-AMGEN-USASP2024197748

PATIENT
  Age: 55 Year
  Sex: Female

DRUGS (1)
  1. TEPEZZA [Suspect]
     Active Substance: TEPROTUMUMAB-TRBW
     Indication: Hyperthyroidism
     Dosage: UNK UNK, Q3WK 8 INFUSION
     Route: 040
     Dates: start: 20240814

REACTIONS (2)
  - Dry skin [Unknown]
  - Alopecia [Not Recovered/Not Resolved]
